FAERS Safety Report 5284920-4 (Version None)
Quarter: 2007Q1

REPORT INFORMATION
  Report Type: 
  Country: None (occurrence: None)
  Receive Date: 20061229
  Receipt Date: 20060921
  Transmission Date: 20070707
  Serious: Yes (Other)
  Sender: FDA-Public Use
  Company Number: PHEH2006US12065

PATIENT
  Age: 62 Year
  Sex: Female

DRUGS (1)
  1. CLOZARIL [Suspect]
     Indication: SCHIZOPHRENIA
     Dosage: 50 MG, QD, ORAL
     Route: 048

REACTIONS (2)
  - ANAEMIA [None]
  - WHITE BLOOD CELL COUNT DECREASED [None]
